FAERS Safety Report 8855528 (Version 1)
Quarter: 2012Q4

REPORT INFORMATION
  Report Type: 
  Country: US (occurrence: US)
  Receive Date: 20121023
  Receipt Date: 20121023
  Transmission Date: 20130627
  Serious: No
  Sender: FDA-Public Use
  Company Number: US-AMGEN-USASP2012059570

PATIENT
  Sex: Male

DRUGS (11)
  1. ENBREL [Suspect]
     Indication: PRODUCT USED FOR UNKNOWN INDICATION
     Dosage: 50 mg, qwk
     Route: 058
     Dates: start: 2009
  2. DYAZIDE [Concomitant]
     Dosage: 37.5 - 25
  3. LEFLUNOMIDE [Concomitant]
     Dosage: 10 mg, UNK
  4. ADVIL                              /00044201/ [Concomitant]
     Dosage: 200 mg, UNK
  5. BENTYL [Concomitant]
     Dosage: 20 mg, UNK
  6. ANTIVERT                           /00007101/ [Concomitant]
     Dosage: 12.5 mg, UNK
  7. CLARITIN                           /00413701/ [Concomitant]
     Dosage: 10 mg, UNK
  8. FOLIC ACID [Concomitant]
     Dosage: 1 mg, UNK
  9. DEXILANT [Concomitant]
     Dosage: 30 mg, UNK
  10. ARAVA [Concomitant]
     Dosage: 20 mg, UNK
  11. VITAMIN D3 [Concomitant]
     Dosage: UNK

REACTIONS (2)
  - Vitamin D decreased [Unknown]
  - Injection site pain [Unknown]
